FAERS Safety Report 4779855-7 (Version None)
Quarter: 2005Q3

REPORT INFORMATION
  Report Type: 
  Country: None (occurrence: None)
  Receive Date: 20050914
  Receipt Date: 20040804
  Transmission Date: 20060218
  Serious: Yes (Hospitalization)
  Sender: FDA-Public Use
  Company Number: 163-20785-04050557

PATIENT
  Age: 56 Year
  Sex: Female
  Weight: 78.4723 kg

DRUGS (13)
  1. THALOMID [Suspect]
     Indication: CARCINOID TUMOUR
     Dosage: 300 MG, QD, ORAL
     Route: 048
     Dates: start: 20040419, end: 20040628
  2. DOCETAXEL (DOCETAXEL) (SOLUTION) [Suspect]
     Indication: CARCINOID TUMOUR
     Dosage: 38 MG, Q WEEK, INTRAVENOUS
     Route: 042
     Dates: start: 20040412, end: 20040628
  3. MOTRIN [Concomitant]
  4. PERCOCET [Concomitant]
  5. PRILOSEC [Concomitant]
  6. IMITREX [Concomitant]
  7. ALBUTEROL (SALBUTAMOL) (SPRAY  (NOT INHALATION)) [Concomitant]
  8. TRAZODONE HCL [Concomitant]
  9. COUMADIN [Concomitant]
  10. DECADRON [Concomitant]
  11. SENOKOT [Concomitant]
  12. LACTULOSE [Concomitant]
  13. OXYCONTIN (OXYCODONE HYDROCHLORIDE) (TABLETS) [Concomitant]

REACTIONS (6)
  - ASTHENIA [None]
  - CHEST PAIN [None]
  - DYSPNOEA [None]
  - PLEURAL EFFUSION [None]
  - PNEUMOTHORAX [None]
  - PULMONARY HYPERTENSION [None]
